FAERS Safety Report 13358839 (Version 1)
Quarter: 2017Q1

REPORT INFORMATION
  Report Type: Spontaneous
  Country: FR (occurrence: FR)
  Receive Date: 20170322
  Receipt Date: 20170322
  Transmission Date: 20170429
  Serious: Yes (Hospitalization)
  Sender: FDA-Public Use
  Company Number: FR-SA-2017SA046550

PATIENT
  Age: 58 Year
  Sex: Male

DRUGS (3)
  1. SERESTA [Suspect]
     Active Substance: OXAZEPAM
     Dosage: FORM: DIVISIBLE TABLET
     Route: 048
  2. SERESTA [Suspect]
     Active Substance: OXAZEPAM
     Route: 048
  3. STILNOX [Suspect]
     Active Substance: ZOLPIDEM TARTRATE
     Route: 048

REACTIONS (4)
  - Tonic convulsion [Recovered/Resolved]
  - General physical health deterioration [Recovered/Resolved]
  - Drug dependence [Unknown]
  - Drug withdrawal convulsions [Recovered/Resolved]
